FAERS Safety Report 6850891-X (Version None)
Quarter: 2010Q3

REPORT INFORMATION
  Report Type: 
  Country: None (occurrence: None)
  Receive Date: 20100716
  Receipt Date: 20071024
  Transmission Date: 20110219
  Serious: No
  Sender: FDA-Public Use
  Company Number: US-PFIZER INC-2007090266

PATIENT
  Sex: Female
  Weight: 136.1 kg

DRUGS (7)
  1. CHANTIX [Suspect]
     Indication: SMOKING CESSATION THERAPY
     Route: 048
     Dates: start: 20070701
  2. RISPERDAL [Concomitant]
     Indication: PARANOIA
     Route: 048
     Dates: start: 19950101
  3. EFFEXOR [Concomitant]
     Indication: DEPRESSION
     Route: 048
     Dates: start: 19950101
  4. WELLBUTRIN [Concomitant]
     Indication: DEPRESSION
     Route: 048
     Dates: start: 19950101
  5. DEPAKOTE [Concomitant]
     Route: 048
  6. LIPITOR [Concomitant]
     Indication: BLOOD CHOLESTEROL INCREASED
     Route: 048
  7. LASIX [Concomitant]
     Route: 048

REACTIONS (1)
  - CHEST PAIN [None]
